FAERS Safety Report 4948862-3 (Version None)
Quarter: 2006Q1

REPORT INFORMATION
  Report Type: 
  Country: None (occurrence: None)
  Receive Date: 20060321
  Receipt Date: 20060316
  Transmission Date: 20060701
  Serious: Yes (Death)
  Sender: FDA-Public Use
  Company Number: US-BRISTOL-MYERS SQUIBB COMPANY-13318191

PATIENT
  Age: 77 Year
  Sex: Female

DRUGS (1)
  1. ENKAID [Suspect]

REACTIONS (1)
  - PULMONARY FIBROSIS [None]
